FAERS Safety Report 17873870 (Version 2)
Quarter: 2020Q2

REPORT INFORMATION
  Report Type: Spontaneous
  Country: US (occurrence: US)
  Receive Date: 20200609
  Receipt Date: 20200616
  Transmission Date: 20200714
  Serious: No
  Sender: FDA-Public Use
  Company Number: US-HTU-2019US019635

PATIENT
  Sex: Male

DRUGS (1)
  1. VALCHLOR [Suspect]
     Active Substance: MECHLORETHAMINE
     Indication: CUTANEOUS T-CELL LYMPHOMA
     Dosage: THIN FILM, NIGHTLY
     Route: 061
     Dates: start: 2019

REACTIONS (11)
  - Application site dryness [Unknown]
  - Application site pruritus [Unknown]
  - Localised infection [Unknown]
  - Erythema [Unknown]
  - Skin lesion [Recovering/Resolving]
  - Application site ulcer [Unknown]
  - Application site rash [Unknown]
  - Peripheral swelling [Unknown]
  - Skin irritation [Unknown]
  - Application site erythema [Unknown]
  - Diarrhoea [Unknown]
